FAERS Safety Report 4430166-9 (Version None)
Quarter: 2004Q3

REPORT INFORMATION
  Report Type: 
  Country: None (occurrence: None)
  Receive Date: 20040817
  Receipt Date: 20040806
  Transmission Date: 20050211
  Serious: Yes (Death, Life-Threatening, Hospitalization)
  Sender: FDA-Public Use
  Company Number: STA-AE-04-MTX-352

PATIENT
  Age: 60 Year
  Sex: Male

DRUGS (3)
  1. METHOTREXATE [Suspect]
     Indication: RHEUMATOID ARTHRITIS
     Dosage: ORAL
     Route: 048
     Dates: end: 20040601
  2. FOLIC ACID [Concomitant]
  3. MELOXICAM (MELOXICAM) [Concomitant]

REACTIONS (3)
  - MYOCARDITIS [None]
  - PANCYTOPENIA [None]
  - RESPIRATORY FAILURE [None]
